FAERS Safety Report 8161507 (Version 2)
Quarter: 2020Q4

REPORT INFORMATION
  Report Type: Spontaneous
  Country: US (occurrence: US)
  Receive Date: 20110929
  Receipt Date: 20201103
  Transmission Date: 20210114
  Serious: Yes (Hospitalization)
  Sender: FDA-Public Use
  Company Number: US-PFIZER INC-2011222763

PATIENT
  Age: 25 Year
  Sex: Male

DRUGS (1)
  1. SILDENAFIL CITRATE. [Suspect]
     Active Substance: SILDENAFIL CITRATE
     Indication: PRIAPISM
     Dosage: 50 MG, DAILY

REACTIONS (3)
  - Product use in unapproved indication [Unknown]
  - Sickle cell anaemia with crisis [Recovering/Resolving]
  - Off label use [Unknown]
